FAERS Safety Report 18386520 (Version 1)
Quarter: 2020Q4

REPORT INFORMATION
  Report Type: Spontaneous
  Country: US (occurrence: US)
  Receive Date: 20201015
  Receipt Date: 20201015
  Transmission Date: 20210114
  Serious: Yes (Life-Threatening, Hospitalization, Disabling)
  Sender: FDA-Public Use
  Company Number: US-EMCURE PHARMACEUTICALS LTD-2020-EPL-001559

PATIENT
  Age: 27 Year
  Sex: Female

DRUGS (1)
  1. ACETAMINOPHEN. [Suspect]
     Active Substance: ACETAMINOPHEN
     Dosage: }50 TABLETS INGESTED OVER 3-4 DAYS PRIOR PRESENTATION

REACTIONS (7)
  - Oliguria [Unknown]
  - Toxicity to various agents [Unknown]
  - Tachycardia [Unknown]
  - Acute kidney injury [Unknown]
  - Overdose [Unknown]
  - Hepatic encephalopathy [Unknown]
  - Acute hepatic failure [Not Recovered/Not Resolved]
